FAERS Safety Report 6506392-1 (Version None)
Quarter: 2009Q4

REPORT INFORMATION
  Report Type: 
  Country: None (occurrence: None)
  Receive Date: 20091218
  Receipt Date: 20091215
  Transmission Date: 20100525
  Serious: Yes (Death, Hospitalization)
  Sender: FDA-Public Use
  Company Number: ZA-B.I. PHARMACEUTICALS,INC./RIDGEFIELD-2009-BP-10906BP

PATIENT
  Sex: Female

DRUGS (2)
  1. NEVIRAPINE [Suspect]
     Indication: PROPHYLAXIS AGAINST HIV INFECTION
     Dosage: 2.8 ML
     Route: 048
     Dates: start: 20090105, end: 20090518
  2. AZT [Concomitant]
     Indication: ANTIRETROVIRAL THERAPY
     Dates: start: 20081118, end: 20081129

REACTIONS (2)
  - DEATH [None]
  - PNEUMONIA [None]
